FAERS Safety Report 17946876 (Version 1)
Quarter: 2020Q2

REPORT INFORMATION
  Report Type: Report from Study
  Country: MX (occurrence: MX)
  Receive Date: 20200625
  Receipt Date: 20200625
  Transmission Date: 20200714
  Serious: Yes (Other)
  Sender: FDA-Public Use
  Company Number: NVSC2020MX179436

PATIENT

DRUGS (1)
  1. CO-DIOVAN [Suspect]
     Active Substance: HYDROCHLOROTHIAZIDE\VALSARTAN
     Indication: HYPERTENSION
     Dosage: 1 DF(160/12.5 MG)), QD (APPROXIMATELY 10 YEARS AGO)
     Route: 048

REACTIONS (3)
  - Diabetes mellitus [Unknown]
  - Memory impairment [Unknown]
  - Visual acuity reduced [Unknown]
